FAERS Safety Report 4641542-3 (Version None)
Quarter: 2005Q2

REPORT INFORMATION
  Report Type: 
  Country: None (occurrence: None)
  Receive Date: 20050421
  Receipt Date: 20050318
  Transmission Date: 20051028
  Serious: Yes (Other)
  Sender: FDA-Public Use
  Company Number: PHBS2005JP03831

PATIENT
  Age: 52 Year
  Sex: Male

DRUGS (3)
  1. STARSIS [Suspect]
     Indication: DIABETES MELLITUS
     Dosage: 270 MG, QD
     Route: 048
     Dates: start: 20030705, end: 20050316
  2. LIPANTIL [Suspect]
     Indication: HYPERLIPIDAEMIA
     Dosage: 150 MG/DAY
     Route: 048
     Dates: start: 20040821
  3. CLARITIN [Concomitant]
     Dosage: 10 MG/DAY
     Dates: start: 20050219

REACTIONS (5)
  - BLOOD CREATININE INCREASED [None]
  - BLOOD POTASSIUM INCREASED [None]
  - BLOOD UREA INCREASED [None]
  - HYPERKALAEMIA [None]
  - RENAL DISORDER [None]
